FAERS Safety Report 16067373 (Version 1)
Quarter: 2019Q2

REPORT INFORMATION
  Report Type: Spontaneous
  Country: US (occurrence: US)
  Receive Date: 20190313
  Receipt Date: 20190313
  Transmission Date: 20190711
  Serious: Yes (Other)
  Sender: FDA-Public Use
  Company Number: None

PATIENT
  Age: 50 Year
  Sex: Male
  Weight: 81.45 kg

DRUGS (2)
  1. MIDAZOLAM [Concomitant]
     Active Substance: MIDAZOLAM HYDROCHLORIDE
     Dates: start: 20190308, end: 20190308
  2. MEPERIDINE [Suspect]
     Active Substance: MEPERIDINE
     Indication: COLONOSCOPY
     Dosage: ?          OTHER FREQUENCY:ONCE;?
     Route: 042
     Dates: start: 20190308, end: 20190308

REACTIONS (2)
  - Hypotension [None]
  - Heart rate decreased [None]

NARRATIVE: CASE EVENT DATE: 20190308
